FAERS Safety Report 18328058 (Version 2)
Quarter: 2020Q4

REPORT INFORMATION
  Report Type: Spontaneous
  Country: MY (occurrence: MY)
  Receive Date: 20200930
  Receipt Date: 20201016
  Transmission Date: 20210113
  Serious: Yes (Death, Hospitalization, Other)
  Sender: FDA-Public Use
  Company Number: MY-B.I. PHARMACEUTICALS,INC./RIDGEFIELD-2020-BI-051287

PATIENT
  Age: 47 Year
  Sex: Female
  Weight: 40 kg

DRUGS (2)
  1. GLYXAMBI [Suspect]
     Active Substance: EMPAGLIFLOZIN\LINAGLIPTIN
     Indication: TYPE 2 DIABETES MELLITUS
     Dosage: 5/25 MG OD
     Route: 065
     Dates: start: 201811, end: 20200818
  2. METFORMIN [Concomitant]
     Active Substance: METFORMIN HYDROCHLORIDE
     Indication: TYPE 2 DIABETES MELLITUS
     Dosage: 500 MG OD
     Route: 065
     Dates: start: 201811

REACTIONS (6)
  - Neutropenic sepsis [Fatal]
  - Breast cancer female [Fatal]
  - Diabetic ketoacidosis [Unknown]
  - Weight decreased [Unknown]
  - Metastases to lung [Unknown]
  - Loss of consciousness [Unknown]

NARRATIVE: CASE EVENT DATE: 201906
